FAERS Safety Report 14348983 (Version 8)
Quarter: 2018Q2

REPORT INFORMATION
  Report Type: Report from Study
  Country: None (occurrence: BE)
  Receive Date: 20180104
  Receipt Date: 20180518
  Transmission Date: 20180711
  Serious: Yes (Hospitalization)
  Sender: FDA-Public Use
  Company Number: BE-ABBVIE-18K-013-2211146-00

PATIENT
  Age: 72 Year
  Sex: Male

DRUGS (17)
  1. DUODOPA [Suspect]
     Active Substance: CARBIDOPA\LEVODOPA
     Dosage: DOSAGES CONTINUOUSLY MONITORED AND ADJUSTED
     Route: 050
     Dates: start: 20170324, end: 20171003
  2. DUODOPA [Suspect]
     Active Substance: CARBIDOPA\LEVODOPA
     Dosage: MD=6.5ML,CD=2.8ML/HR DURING 16HRS, ED=1.8ML
     Route: 050
     Dates: start: 20180323
  3. ASPIRIN. [Concomitant]
     Active Substance: ASPIRIN
     Indication: PRODUCT USED FOR UNKNOWN INDICATION
  4. DUODOPA [Suspect]
     Active Substance: CARBIDOPA\LEVODOPA
     Indication: PARKINSON^S DISEASE
     Dosage: AM: 7.5ML; CD: 2.9ML/H FOR 16 HRS; ED: 2ML
     Route: 050
     Dates: start: 20170320, end: 20170324
  5. STALEVO 150 [Concomitant]
     Indication: PARKINSON^S DISEASE
     Dosage: FORM STRENGTH: 150MG/37.5MG/200MG
     Route: 048
  6. ZOCOR [Concomitant]
     Active Substance: SIMVASTATIN
     Indication: PRODUCT USED FOR UNKNOWN INDICATION
  7. STALEVO 150 [Concomitant]
     Dosage: FORM STRENGTH: 150MG/37.5MG/200MG , FREQUENCY TEXT: EMERGENCY PD MEDICATION: 2 IN 1 DAY
  8. FINASTERIDE EG [Concomitant]
     Indication: PRODUCT USED FOR UNKNOWN INDICATION
  9. STALEVO 100 [Concomitant]
     Indication: PARKINSON^S DISEASE
     Dosage: FORM STRENGTH: 100MG/25MG/200MG;
     Route: 048
  10. STALEVO 100 [Concomitant]
     Dosage: FORM STRENGTH: 100MG/25MG/200MG; FREQUENCY TEXT: EMERGENCY PD MEDICATION: 2 IN 1 DAY
     Dates: start: 2017
  11. SIPRALEXA [Concomitant]
     Active Substance: ESCITALOPRAM OXALATE
     Indication: PRODUCT USED FOR UNKNOWN INDICATION
  12. NOVAFORM [Concomitant]
     Indication: PRODUCT USED FOR UNKNOWN INDICATION
  13. ZESTORETIC [Concomitant]
     Active Substance: HYDROCHLOROTHIAZIDE\LISINOPRIL
     Indication: PRODUCT USED FOR UNKNOWN INDICATION
     Dosage: FORM STRENGTH: 20MG/12.5MG;
  14. DUODOPA [Suspect]
     Active Substance: CARBIDOPA\LEVODOPA
     Dosage: AM: 6.5ML; CD: 2.7ML/H FOR 16 HRS; ED: 1.8ML
     Route: 050
     Dates: start: 20171003, end: 20180219
  15. DUODOPA [Suspect]
     Active Substance: CARBIDOPA\LEVODOPA
     Dosage: MD=6.5ML,CD=2.5ML/HR DURING 16HRS, ED=1.8ML
     Route: 050
     Dates: start: 20180219, end: 20180323
  16. METFORMINE SANDOZ [Concomitant]
     Active Substance: METFORMIN HYDROCHLORIDE
     Indication: PRODUCT USED FOR UNKNOWN INDICATION
  17. RIVOTRIL [Concomitant]
     Active Substance: CLONAZEPAM
     Indication: PRODUCT USED FOR UNKNOWN INDICATION

REACTIONS (5)
  - Gait disturbance [Unknown]
  - Fall [Recovered/Resolved]
  - Dyskinesia [Recovering/Resolving]
  - Hip fracture [Unknown]
  - Dysstasia [Unknown]

NARRATIVE: CASE EVENT DATE: 201712
